FAERS Safety Report 14120449 (Version 3)
Quarter: 2017Q4

REPORT INFORMATION
  Report Type: Spontaneous
  Country: FR (occurrence: FR)
  Receive Date: 20171024
  Receipt Date: 20171114
  Transmission Date: 20180321
  Serious: Yes (Disabling, Other)
  Sender: FDA-Public Use
  Company Number: PHHY2017FR149992

PATIENT
  Sex: Female

DRUGS (2)
  1. OMNITROP [Suspect]
     Active Substance: SOMATROPIN
     Indication: GROWTH RETARDATION
     Route: 058
     Dates: start: 2011
  2. LUTERAN [Suspect]
     Active Substance: CHLORMADINONE ACETATE
     Indication: PUBERTY
     Route: 065

REACTIONS (9)
  - Dyspnoea [Not Recovered/Not Resolved]
  - Aortic valve disease [Unknown]
  - Rash macular [Not Recovered/Not Resolved]
  - Pain in extremity [Not Recovered/Not Resolved]
  - Foot deformity [Not Recovered/Not Resolved]
  - Weight increased [Not Recovered/Not Resolved]
  - Increased appetite [Not Recovered/Not Resolved]
  - Feeling abnormal [Unknown]
  - Drug ineffective [Not Recovered/Not Resolved]

NARRATIVE: CASE EVENT DATE: 2015
